FAERS Safety Report 20530139 (Version 1)
Quarter: 2022Q1

REPORT INFORMATION
  Report Type: Spontaneous
  Country: FR (occurrence: FR)
  Receive Date: 20220301
  Receipt Date: 20220301
  Transmission Date: 20220423
  Serious: Yes (Hospitalization)
  Sender: FDA-Public Use
  Company Number: None

PATIENT
  Age: 55 Year
  Sex: Female
  Weight: 59 kg

DRUGS (3)
  1. CARBOPLATIN [Suspect]
     Active Substance: CARBOPLATIN
     Indication: Breast cancer metastatic
     Dosage: CARBOPLATINE TEVA,325MG
     Route: 042
     Dates: start: 20220112
  2. GEMCITABINE [Suspect]
     Active Substance: GEMCITABINE
     Indication: Breast cancer metastatic
     Dosage: GEMCITABINE ACCORD, 1700MG
     Route: 042
     Dates: start: 20220112
  3. KEYTRUDA [Suspect]
     Active Substance: PEMBROLIZUMAB
     Indication: Breast cancer metastatic
     Dosage: 200 MG,KEYTRUDA 25 MG/ML, CONCENTRATE FOR SOLUTION FOR INFUSION
     Route: 042
     Dates: start: 20220112, end: 20220112

REACTIONS (2)
  - Hepatic cytolysis [Recovering/Resolving]
  - Cholestasis [Recovering/Resolving]

NARRATIVE: CASE EVENT DATE: 20220119
